FAERS Safety Report 4757228-0 (Version None)
Quarter: 2005Q3

REPORT INFORMATION
  Report Type: 
  Country: None (occurrence: None)
  Receive Date: 20050829
  Receipt Date: 20050822
  Transmission Date: 20060218
  Serious: Yes (Hospitalization)
  Sender: FDA-Public Use
  Company Number: RS005353-J

PATIENT
  Age: 72 Year
  Sex: Male
  Weight: 55 kg

DRUGS (16)
  1. RABEPRAZOLE SODIUM [Suspect]
     Indication: GASTRIC MUCOSAL LESION
     Dosage: 20 MG, 1 IN 1 D, ORAL
     Route: 048
     Dates: start: 20050210, end: 20050516
  2. SAIBOKU-TO (SAIBOKU-TO) [Suspect]
     Indication: COUGH
     Dosage: ORAL
     Route: 048
     Dates: start: 20050420, end: 20050516
  3. ACTOS [Suspect]
     Indication: INSULIN RESISTANT DIABETES
     Dosage: 15 MG, 1 IN 1 D, ORAL
     Route: 048
     Dates: start: 20050404, end: 20050516
  4. MEILAX (ETHYL LOFLAZEPATE) [Suspect]
     Indication: SEDATION
     Dosage: 1 MG, 1 IN 1 D, ORAL
     Route: 048
     Dates: start: 20050420, end: 20050516
  5. CODEINE PHOSPHATE (CODEINE PHOSPHATE) [Suspect]
     Indication: COUGH
     Dosage: 4.5 G, 1 IN 1 D, ORAL
     Route: 048
     Dates: start: 20050420, end: 20050516
  6. KIPRES (MONTELUKAST SODIUM) [Suspect]
     Indication: HYPERSENSITIVITY
     Dosage: ORAL
     Route: 048
     Dates: start: 20050324, end: 20050516
  7. HANGE-KOBOKU-TO [Concomitant]
  8. BAKUMONDO-TO [Concomitant]
  9. GASMOTIN (MOSAPRIDE CITRATE) [Concomitant]
  10. MEDICON (DEXTROMETHORPHAN HYDROBROMIDE) [Concomitant]
  11. ONON (PRANLUKAST) [Concomitant]
  12. NORVASC [Concomitant]
  13. FLIVAS (NAFTOPIDIL) [Concomitant]
  14. METHYCOBAL (MECOBALAMIN) [Concomitant]
  15. PRORENAL (LIMAPROST) [Concomitant]
  16. ATELEC (CLINIDIPINE) [Concomitant]

REACTIONS (15)
  - BACK DISORDER [None]
  - BALANCE DISORDER [None]
  - BLOOD LACTATE DEHYDROGENASE DECREASED [None]
  - CARDIOMEGALY [None]
  - COLLAGEN DISORDER [None]
  - CRYPTOGENIC ORGANIZING PNEUMONIA [None]
  - EOSINOPHILIA [None]
  - FALL [None]
  - HYPOAESTHESIA [None]
  - INTERSTITIAL LUNG DISEASE [None]
  - LARYNGEAL DISORDER [None]
  - LUMBAR SPINAL STENOSIS [None]
  - PLEURAL FIBROSIS [None]
  - PNEUMONITIS [None]
  - VOCAL CORD PARALYSIS [None]
